FAERS Safety Report 8796177 (Version 4)
Quarter: 2013Q3

REPORT INFORMATION
  Report Type: Spontaneous
  Country: US (occurrence: US)
  Receive Date: 20120919
  Receipt Date: 20130702
  Transmission Date: 20140515
  Serious: Yes (Hospitalization, Other)
  Sender: FDA-Public Use
  Company Number: US-PFIZER INC-2012231686

PATIENT
  Age: 74 Year
  Sex: Male
  Weight: 63.49 kg

DRUGS (7)
  1. LYRICA [Suspect]
     Indication: LIMB DISCOMFORT
     Dosage: 75 MG, 2X/DAY
     Route: 048
  2. LYRICA [Suspect]
     Indication: NEUROPATHY PERIPHERAL
     Dosage: 75 MG, 2X/DAY
     Route: 048
     Dates: end: 201306
  3. LYRICA [Suspect]
     Indication: SPINAL PAIN
  4. AMANTADINE [Suspect]
     Indication: MOVEMENT DISORDER
     Dosage: 100 MG, 2X/DAY
     Route: 048
     Dates: start: 20121004, end: 20121004
  5. METOPROLOL [Concomitant]
     Indication: HYPERTENSION
     Dosage: UNK
  6. TAPAZOLE [Concomitant]
     Indication: HYPERTHYROIDISM
     Dosage: UNK
  7. HYDROCODONE [Concomitant]
     Indication: SPINAL PAIN
     Dosage: UNK

REACTIONS (3)
  - Pneumonia [Unknown]
  - Hallucination [Unknown]
  - Tremor [Unknown]
